FAERS Safety Report 5624666-3 (Version None)
Quarter: 2008Q1

REPORT INFORMATION
  Report Type: 
  Country: None (occurrence: None)
  Receive Date: 20080213
  Receipt Date: 20080130
  Transmission Date: 20080703
  Serious: Yes (Hospitalization, Congenital Anomaly)
  Sender: FDA-Public Use
  Company Number: A0681909A

PATIENT
  Sex: Female

DRUGS (5)
  1. PAXIL [Suspect]
     Indication: DEPRESSION
     Dates: start: 20020301, end: 20050801
  2. PRENATAL VITAMINS [Concomitant]
  3. TYLENOL (CAPLET) [Concomitant]
  4. PENICILLIN [Concomitant]
  5. PAROXETINE HCL [Concomitant]
     Indication: DEPRESSION

REACTIONS (13)
  - ATRIAL SEPTAL DEFECT [None]
  - CARDIAC FAILURE [None]
  - CARDIAC MURMUR [None]
  - CARDIOMEGALY [None]
  - DRUG EXPOSURE DURING PREGNANCY [None]
  - ELECTROCARDIOGRAM QRS COMPLEX PROLONGED [None]
  - FLUID OVERLOAD [None]
  - RIGHT VENTRICULAR HYPERTROPHY [None]
  - SINUS TACHYCARDIA [None]
  - TACHYPNOEA [None]
  - TRICUSPID VALVE INCOMPETENCE [None]
  - VENTRICULAR SEPTAL DEFECT [None]
  - WEIGHT GAIN POOR [None]
